FAERS Safety Report 6510824-2 (Version None)
Quarter: 2009Q4

REPORT INFORMATION
  Report Type: 
  Country: None (occurrence: None)
  Receive Date: 20091222
  Receipt Date: 20090113
  Transmission Date: 20100525
  Serious: No
  Sender: FDA-Public Use
  Company Number: US-ASTRAZENECA-2009UW01068

PATIENT
  Age: 75 Year
  Sex: Male
  Weight: 84.4 kg

DRUGS (8)
  1. CRESTOR [Suspect]
     Indication: BLOOD CHOLESTEROL INCREASED
     Route: 048
     Dates: start: 20090112
  2. ZETIA [Concomitant]
  3. LEVOTHYROXINE SODIUM [Concomitant]
  4. AMIODARONE [Concomitant]
  5. METOPROLOL TARTRATE [Concomitant]
  6. OMEPRAZOLE [Concomitant]
     Route: 048
  7. CLORAZEPATE DIPOTASSIUM [Concomitant]
  8. SPIRIVA [Concomitant]

REACTIONS (2)
  - ABNORMAL DREAMS [None]
  - NERVOUSNESS [None]
